FAERS Safety Report 7669349-3 (Version None)
Quarter: 2011Q3

REPORT INFORMATION
  Report Type: 
  Country: None (occurrence: None)
  Receive Date: 20110808
  Receipt Date: 20110801
  Transmission Date: 20111222
  Serious: Yes (Other)
  Sender: FDA-Public Use
  Company Number: PHHO2011DE12193

PATIENT
  Sex: Male

DRUGS (10)
  1. SIMULECT [Suspect]
     Indication: RENAL TRANSPLANT
     Dosage: 20 MG, UNK
     Route: 042
     Dates: start: 20110717
  2. SANDIMMUNE [Concomitant]
     Dosage: 280 MG, UNK
     Dates: start: 20110722
  3. NO TREATMENT RECEIVED [Suspect]
     Indication: RENAL TRANSPLANT
     Dosage: NO TREATMENT
  4. SANDIMMUNE [Concomitant]
     Dosage: 180 MG, UNK
     Dates: start: 20110720
  5. SANDIMMUNE [Concomitant]
     Dosage: 200 MG, UNK
     Dates: start: 20110721
  6. SANDIMMUNE [Concomitant]
     Dosage: 450 MG, UNK
     Dates: start: 20110725
  7. SANDIMMUNE [Concomitant]
     Dosage: 470 MG, UNK
     Dates: start: 20110726
  8. SANDIMMUNE [Concomitant]
     Dosage: 480 MG, UNK
     Dates: start: 20110727
  9. SANDIMMUNE [Concomitant]
     Dosage: 400 MG, UNK
     Dates: start: 20110724
  10. SANDIMMUNE [Concomitant]
     Indication: RENAL TRANSPLANT
     Dosage: 80 MG, UNK
     Dates: start: 20110719

REACTIONS (1)
  - RHABDOMYOLYSIS [None]
